FAERS Safety Report 12977004 (Version 1)
Quarter: 2016Q4

REPORT INFORMATION
  Report Type: Spontaneous
  Country: US (occurrence: US)
  Receive Date: 20161128
  Receipt Date: 20161128
  Transmission Date: 20170207
  Serious: No
  Sender: FDA-Public Use
  Company Number: US-SUN PHARMACEUTICAL INDUSTRIES LTD-2016US-125152

PATIENT
  Age: 55 Year
  Sex: Female

DRUGS (1)
  1. ULTRAVATE [Suspect]
     Active Substance: HALOBETASOL PROPIONATE
     Indication: DERMATITIS
     Dosage: UNK
     Route: 065
     Dates: start: 20160803, end: 20160913

REACTIONS (1)
  - Drug ineffective [Unknown]

NARRATIVE: CASE EVENT DATE: 20160917
